FAERS Safety Report 22542043 (Version 1)
Quarter: 2023Q2

REPORT INFORMATION
  Report Type: Spontaneous
  Country: JP (occurrence: None)
  Receive Date: 20230609
  Receipt Date: 20230609
  Transmission Date: 20230721
  Serious: Yes (Death)
  Sender: FDA-Public Use
  Company Number: 2023A133006

PATIENT
  Age: 69 Year
  Sex: Male

DRUGS (1)
  1. DURVALUMAB [Suspect]
     Active Substance: DURVALUMAB
     Indication: Lung adenocarcinoma
     Dates: start: 201906

REACTIONS (1)
  - Limbic encephalitis [Fatal]

NARRATIVE: CASE EVENT DATE: 20190101
